FAERS Safety Report 9883882 (Version 1)
Quarter: 2014Q1

REPORT INFORMATION
  Report Type: Spontaneous
  Country: US (occurrence: US)
  Receive Date: 20140210
  Receipt Date: 20140210
  Transmission Date: 20141002
  Serious: Yes (Other)
  Sender: FDA-Public Use
  Company Number: US-BAYER-2014-019705

PATIENT
  Age: 41 Year
  Sex: Female

DRUGS (5)
  1. YAZ [Suspect]
  2. YASMIN [Suspect]
  3. SYNTHROID [Concomitant]
     Dosage: 0.1 MG, DAILY
  4. CLARINEX [DESLORATADINE] [Concomitant]
     Dosage: 1 DAILY
  5. PAXIL [Concomitant]
     Dosage: 35 MG, DAILY

REACTIONS (1)
  - Thrombophlebitis superficial [None]
